FAERS Safety Report 11005095 (Version 1)
Quarter: 2015Q2

REPORT INFORMATION
  Report Type: Spontaneous
  Country: US (occurrence: US)
  Receive Date: 20150409
  Receipt Date: 20150409
  Transmission Date: 20150821
  Serious: No
  Sender: FDA-Public Use
  Company Number: US-PFIZER INC-2015118547

PATIENT
  Age: 49 Year
  Sex: Female
  Weight: 66 kg

DRUGS (5)
  1. LYRICA [Suspect]
     Active Substance: PREGABALIN
     Indication: FIBROMYALGIA
     Dosage: 150 MG, 2X/DAY
  2. PREVALITE [Concomitant]
     Active Substance: CHOLESTYRAMINE
     Dosage: 4 G, 2X/DAY
  3. LYRICA [Suspect]
     Active Substance: PREGABALIN
     Indication: ARTHRITIS
  4. SINSIA [Concomitant]
     Dosage: 200 MG, WEEKLY
  5. METHOTREXATE [Concomitant]
     Active Substance: METHOTREXATE
     Dosage: UNK

REACTIONS (2)
  - Product use issue [Unknown]
  - Pain [Unknown]
